FAERS Safety Report 10094575 (Version 1)
Quarter: 2014Q2

REPORT INFORMATION
  Report Type: Spontaneous
  Country: US (occurrence: US)
  Receive Date: 20140422
  Receipt Date: 20140422
  Transmission Date: 20141212
  Serious: No
  Sender: FDA-Public Use
  Company Number: US-PFIZER INC-2014110538

PATIENT
  Age: 55 Year
  Sex: Female
  Weight: 63.49 kg

DRUGS (2)
  1. LYRICA [Suspect]
     Indication: NEURALGIA
     Dosage: 300 MG, 3X/DAY
     Route: 048
     Dates: start: 2008
  2. HYDROCODONE [Concomitant]
     Dosage: UNK

REACTIONS (4)
  - Weight increased [Unknown]
  - Fluid retention [Unknown]
  - Hyperphagia [Unknown]
  - Memory impairment [Unknown]
